FAERS Safety Report 13123696 (Version 1)
Quarter: 2017Q1

REPORT INFORMATION
  Report Type: Spontaneous
  Country: GB (occurrence: GB)
  Receive Date: 20170117
  Receipt Date: 20170117
  Transmission Date: 20170428
  Serious: Yes (Death)
  Sender: FDA-Public Use
  Company Number: GB-CONCORDIA PHARMACEUTICALS INC.-GSH201405-002794

PATIENT
  Age: 82 Year
  Sex: Female
  Weight: 59.4 kg

DRUGS (8)
  1. FLUOXETINE [Concomitant]
     Active Substance: FLUOXETINE HYDROCHLORIDE
  2. SALBUTAMOL [Concomitant]
     Active Substance: ALBUTEROL
  3. BENDROFLUMETHIAZIDE [Concomitant]
     Active Substance: BENDROFLUMETHIAZIDE
  4. SIMVASTATIN. [Concomitant]
     Active Substance: SIMVASTATIN
  5. PREDNISOLONE. [Suspect]
     Active Substance: PREDNISOLONE
     Indication: CHRONIC OBSTRUCTIVE PULMONARY DISEASE
     Dosage: INDICATION: - COPD AS PART OF SELF MANAGEMENT PLAN
     Route: 048
     Dates: start: 20140407, end: 20140414
  6. IBUPROFEN. [Suspect]
     Active Substance: IBUPROFEN
     Indication: PAIN
     Dosage: THREE TIMES DAILY
     Route: 048
     Dates: start: 20130307, end: 20140414
  7. AMLODIPINE [Concomitant]
     Active Substance: AMLODIPINE BESYLATE
  8. CODEINE [Concomitant]
     Active Substance: CODEINE

REACTIONS (2)
  - Duodenal ulcer repair [Fatal]
  - Sepsis [Fatal]

NARRATIVE: CASE EVENT DATE: 20140413
